FAERS Safety Report 18042993 (Version 1)
Quarter: 2020Q3

REPORT INFORMATION
  Report Type: Spontaneous
  Country: GB (occurrence: GB)
  Receive Date: 20200720
  Receipt Date: 20200720
  Transmission Date: 20201103
  Serious: Yes (Other)
  Sender: FDA-Public Use
  Company Number: GB-TEVA-2020-GB-1802222

PATIENT
  Age: 69 Year
  Sex: Male
  Weight: 78 kg

DRUGS (2)
  1. CONTIFLO [Suspect]
     Active Substance: TAMSULOSIN
     Indication: RENAL DISORDER
     Dosage: PROLONGED RELEASE, 400 MCG
     Route: 048
     Dates: start: 202004
  2. TAMSULOSIN [Suspect]
     Active Substance: TAMSULOSIN
     Dosage: PROLONGED RELEASE, 400 MCG
     Dates: start: 20150224

REACTIONS (3)
  - Vertigo positional [Recovered/Resolved]
  - Dizziness [Recovered/Resolved]
  - Nausea [Recovered/Resolved]

NARRATIVE: CASE EVENT DATE: 20200513
